FAERS Safety Report 12347335 (Version 4)
Quarter: 2018Q1

REPORT INFORMATION
  Report Type: Spontaneous
  Country: US (occurrence: US)
  Receive Date: 20160509
  Receipt Date: 20180216
  Transmission Date: 20180508
  Serious: Yes (Death, Hospitalization, Other)
  Sender: FDA-Public Use
  Company Number: US-PFIZER INC-2016244392

PATIENT
  Age: 71 Year
  Sex: Female
  Weight: 106.59 kg

DRUGS (17)
  1. XARELTO [Concomitant]
     Active Substance: RIVAROXABAN
     Indication: CARDIAC FAILURE CONGESTIVE
     Dosage: 20 MG, 1X/DAY (20 MG, ONE TABLET ONCE A DAY)
     Route: 048
     Dates: start: 2015, end: 20180119
  2. DILTIAZEM. [Concomitant]
     Active Substance: DILTIAZEM
     Indication: CARDIAC FAILURE CONGESTIVE
     Dosage: 30 MG, 2X/DAY (30 MG, ONE TABLET TWICE A DAY)
     Route: 048
     Dates: start: 2015, end: 20180119
  3. SPIROLACTONE [Concomitant]
     Active Substance: SPIRONOLACTONE
     Indication: CARDIAC FAILURE CONGESTIVE
     Dosage: 25 MG, DAILY (25 MG, ONE TABLET EVERY DAY)
     Route: 048
     Dates: start: 201601
  4. MAGNESIUM [Concomitant]
     Active Substance: MAGNESIUM
     Indication: SUPPLEMENTATION THERAPY
     Dosage: 500 MG, DAILY (500 MG, ONE TABLET A DAY)
     Route: 048
     Dates: start: 2013, end: 20180119
  5. VITAMIN B12 [Concomitant]
     Active Substance: CYANOCOBALAMIN
     Indication: SUPPLEMENTATION THERAPY
     Dosage: 500 UG, DAILY (500MCG ONE TABLET DAILY)
     Route: 048
     Dates: start: 2016, end: 20180119
  6. METFORMIN [Concomitant]
     Active Substance: METFORMIN HYDROCHLORIDE
     Indication: DIABETES MELLITUS
     Dosage: 1000 MG, 2X/DAY (1000 MG, ONE TABLET TWICE A DAY)
     Route: 048
     Dates: start: 2010, end: 20180119
  7. BUPROPION XL [Concomitant]
     Active Substance: BUPROPION
     Indication: ANXIETY
     Dosage: 150 MG, 1X/DAY (150 MG, ONE TABLET ONCE A DAY)
     Route: 048
     Dates: start: 201601
  8. FUROSEMIDE. [Concomitant]
     Active Substance: FUROSEMIDE
     Indication: CARDIAC FAILURE CONGESTIVE
     Dosage: 40 MG, 2X/DAY (40 MG, ONE TABLET TWICE A DAY)
     Route: 048
     Dates: start: 2015, end: 20180119
  9. REVATIO [Suspect]
     Active Substance: SILDENAFIL CITRATE
     Indication: PULMONARY HYPERTENSION
     Dosage: 20 MG, 3X/DAY (20 MG, ONE TABLET THREE TIMES A DAY )
     Route: 048
     Dates: start: 201601, end: 20160128
  10. REVATIO [Suspect]
     Active Substance: SILDENAFIL CITRATE
     Dosage: 20 MG, 3X/DAY
     Dates: start: 2016
  11. ESCITALOPRAM [Concomitant]
     Active Substance: ESCITALOPRAM OXALATE
     Indication: ANXIETY
     Dosage: 20 MG, DAILY (20 MG, ONE TABLET A DAY )
     Route: 048
     Dates: start: 2015, end: 20180119
  12. CENTRUM SILVER 50+ FOR WOMEN [Concomitant]
     Indication: SUPPLEMENTATION THERAPY
     Dosage: 1 DF, DAILY
     Route: 048
     Dates: start: 2000, end: 20180119
  13. IRON [Concomitant]
     Active Substance: IRON
     Indication: ANAEMIA
     Dosage: 65 MG, DAILY (65 MG, ONE TABLET DAILY)
     Route: 048
     Dates: start: 201601, end: 20180119
  14. REVATIO [Suspect]
     Active Substance: SILDENAFIL CITRATE
     Dosage: 20 MG, 3X/DAY (20 MG, ONE TABLET THREE TIMES A DAY )
     Route: 048
     Dates: start: 201602
  15. LOSARTAN. [Concomitant]
     Active Substance: LOSARTAN
     Indication: CARDIAC FAILURE CONGESTIVE
     Dosage: 75 MG, DAILY (50MG ONE AND A HALF TABLET DAILY)
     Route: 048
     Dates: start: 201601, end: 20180119
  16. ATORVASTATIN [Concomitant]
     Active Substance: ATORVASTATIN
     Indication: BLOOD CHOLESTEROL INCREASED
     Dosage: 20 MG, ALTERNATE DAY (20 MG, ONE TABLET EVERY OTHER DAY)
     Route: 048
     Dates: start: 2013, end: 20180119
  17. LEVEMIR [Concomitant]
     Active Substance: INSULIN DETEMIR
     Indication: DIABETES MELLITUS
     Dosage: 48 IU, DAILY (28UNITS INJECTION IN THE MORNING AND 20UNITS IN THE EVENING)
     Route: 058
     Dates: start: 2010, end: 20180119

REACTIONS (3)
  - Death [Fatal]
  - Drug dose omission [Recovered/Resolved]
  - Cardiac failure congestive [Recovered/Resolved]

NARRATIVE: CASE EVENT DATE: 20160129
